FAERS Safety Report 21117656 (Version 1)
Quarter: 2022Q3

REPORT INFORMATION
  Report Type: Spontaneous
  Country: US (occurrence: US)
  Receive Date: 20220722
  Receipt Date: 20220722
  Transmission Date: 20221026
  Serious: No
  Sender: FDA-Public Use
  Company Number: US-CADILA HEALTHCARE LIMITED-US-ZYDUS-066736

PATIENT

DRUGS (1)
  1. ACAMPROSATE CALCIUM [Suspect]
     Active Substance: ACAMPROSATE CALCIUM
     Indication: Alcoholism
     Dosage: 333 MILLIGRAM, TID
     Route: 048
     Dates: start: 20210602, end: 20210602

REACTIONS (3)
  - Anxiety [Recovered/Resolved]
  - Nervousness [Recovered/Resolved]
  - Abdominal pain upper [Recovered/Resolved]

NARRATIVE: CASE EVENT DATE: 20210602
